FAERS Safety Report 6377312-8 (Version None)
Quarter: 2009Q3

REPORT INFORMATION
  Report Type: 
  Country: None (occurrence: None)
  Receive Date: 20090923
  Receipt Date: 20090923
  Transmission Date: 20100115
  Serious: Yes (Hospitalization)
  Sender: FDA-Public Use
  Company Number: None

PATIENT
  Age: 74 Year
  Sex: Male

DRUGS (12)
  1. VANCOMYCIN [Suspect]
     Indication: BACTERAEMIA
     Dosage: 1750 MG IV Q12
     Route: 042
     Dates: start: 20090515, end: 20090516
  2. NICOTINE [Concomitant]
  3. DOCUSATE [Concomitant]
  4. SENNA [Concomitant]
  5. SERTRALINE HYDROCHLORIDE [Concomitant]
  6. ATORVASTATIN [Concomitant]
  7. ALFUZOSIN HCL [Concomitant]
  8. GINKO BILOBA [Concomitant]
  9. CLOPIDOGREL [Concomitant]
  10. ESOMEPRAZOLE [Concomitant]
  11. ASPIRIN [Concomitant]
  12. HYDROMORPHONE [Concomitant]

REACTIONS (2)
  - OEDEMA PERIPHERAL [None]
  - RED MAN SYNDROME [None]
